FAERS Safety Report 24875195 (Version 1)
Quarter: 2025Q1

REPORT INFORMATION
  Report Type: Spontaneous
  Country: ES (occurrence: ES)
  Receive Date: 20250122
  Receipt Date: 20250122
  Transmission Date: 20250409
  Serious: Yes (Death, Other)
  Sender: PFIZER
  Company Number: ES-ARISTO PHARMA-FENT-OMEP-PARA202412261

PATIENT
  Age: 75 Year
  Sex: Male

DRUGS (14)
  1. CISATRACURIUM BESYLATE [Suspect]
     Active Substance: CISATRACURIUM BESYLATE
  2. METHOTREXATE SODIUM [Suspect]
     Active Substance: METHOTREXATE SODIUM
  3. FENTANYL [Suspect]
     Active Substance: FENTANYL
  4. OMEPRAZOLE [Suspect]
     Active Substance: OMEPRAZOLE
  5. ACETAMINOPHEN [Suspect]
     Active Substance: ACETAMINOPHEN
  6. ALBUMIN HUMAN [Suspect]
     Active Substance: ALBUMIN HUMAN
  7. AMIODARONE [Suspect]
     Active Substance: AMIODARONE
  8. ENOXAPARIN [Suspect]
     Active Substance: ENOXAPARIN
  9. HYDROCORTISONE [Suspect]
     Active Substance: HYDROCORTISONE
  10. MAGNESIUM [Suspect]
     Active Substance: MAGNESIUM
  11. MIDAZOLAM [Suspect]
     Active Substance: MIDAZOLAM
  12. FUROSEMIDE [Suspect]
     Active Substance: FUROSEMIDE
  13. PROPOFOL [Suspect]
     Active Substance: PROPOFOL
  14. INSULIN NOS [Suspect]
     Active Substance: INSULIN NOS

REACTIONS (4)
  - Hypoxia [Fatal]
  - Hypokalaemia [Fatal]
  - Klebsiella infection [Fatal]
  - Cyanosis [Fatal]
